FAERS Safety Report 8659270 (Version 3)
Quarter: 2012Q4

REPORT INFORMATION
  Report Type: Report from Study
  Country: GB (occurrence: GB)
  Receive Date: 20120711
  Receipt Date: 20121019
  Transmission Date: 20130627
  Serious: Yes (Life-Threatening, Hospitalization)
  Sender: FDA-Public Use
  Company Number: GB-CELGENEUS-167-21880-12070069

PATIENT
  Age: 48 Year
  Sex: Male

DRUGS (3)
  1. REVLIMID [Suspect]
     Indication: MULTIPLE MYELOMA
     Dosage: 25 Milligram
     Route: 048
     Dates: start: 20120411, end: 20120622
  2. CYCLOPHOSPHAMID [Suspect]
     Indication: MULTIPLE MYELOMA
     Dosage: 500 Milligram
     Route: 048
     Dates: start: 20120411, end: 20120614
  3. DEXAMETHASONE [Suspect]
     Indication: MULTIPLE MYELOMA
     Dosage: 40 Milligram
     Route: 048
     Dates: start: 20120411, end: 20120621

REACTIONS (1)
  - Cerebrovascular accident [Recovered/Resolved]
